FAERS Safety Report 8333128-4 (Version None)
Quarter: 2012Q2

REPORT INFORMATION
  Report Type: 
  Country: None (occurrence: None)
  Receive Date: 20120503
  Receipt Date: 20120425
  Transmission Date: 20120825
  Serious: Yes (Hospitalization)
  Sender: FDA-Public Use
  Company Number: GB-JNJFOC-20120413903

PATIENT
  Sex: Male
  Weight: 74.7 kg

DRUGS (7)
  1. DIPROBASE CREAM [Concomitant]
     Route: 061
  2. DOVOBET [Concomitant]
  3. RAMIPRIL [Concomitant]
  4. CITALOPRAM [Concomitant]
     Dates: start: 20111124
  5. USTEKINUMAB [Suspect]
     Indication: PSORIASIS
     Route: 058
     Dates: start: 20110802
  6. EZETIMIBE [Concomitant]
  7. ATENOLOL [Concomitant]

REACTIONS (5)
  - ASPERGILLOSIS [None]
  - ATRIAL FIBRILLATION [None]
  - LOWER RESPIRATORY TRACT INFECTION [None]
  - RESPIRATORY FAILURE [None]
  - SPUTUM CULTURE POSITIVE [None]
